FAERS Safety Report 14847735 (Version 1)
Quarter: 2018Q2

REPORT INFORMATION
  Report Type: Spontaneous
  Country: SI (occurrence: SI)
  Receive Date: 20180504
  Receipt Date: 20180504
  Transmission Date: 20180711
  Serious: Yes (Death)
  Sender: FDA-Public Use
  Company Number: SI-TAIHO ONCOLOGY INC-JPTT180376

PATIENT
  Age: 23 Year
  Sex: Female

DRUGS (2)
  1. LONSURF [Suspect]
     Active Substance: TIPIRACIL HYDROCHLORIDE\TRIFLURIDINE
     Dosage: UNK (35 MG/M2) BID
     Route: 048
     Dates: end: 201708
  2. LONSURF [Suspect]
     Active Substance: TIPIRACIL HYDROCHLORIDE\TRIFLURIDINE
     Indication: COLORECTAL CANCER METASTATIC
     Dosage: UNK (35 MG/M2) BID
     Route: 048
     Dates: start: 20170516

REACTIONS (3)
  - Malignant neoplasm progression [Fatal]
  - Nausea [Unknown]
  - Neutropenia [Unknown]

NARRATIVE: CASE EVENT DATE: 2017
